FAERS Safety Report 10160394 (Version 2)
Quarter: 2014Q2

REPORT INFORMATION
  Report Type: Report from Study
  Country: US (occurrence: US)
  Receive Date: 20140508
  Receipt Date: 20140515
  Transmission Date: 20141212
  Serious: Yes (Other)
  Sender: FDA-Public Use
  Company Number: US-BAXTER-2014BAX022432

PATIENT
  Age: 53 Year
  Sex: Female
  Weight: 100.79 kg

DRUGS (1)
  1. ARALAST NP [Suspect]
     Indication: ALPHA-1 ANTI-TRYPSIN DEFICIENCY
     Route: 042
     Dates: start: 2002

REACTIONS (2)
  - Pneumonia [Recovered/Resolved]
  - Weight decreased [Unknown]
